FAERS Safety Report 9272549 (Version 1)
Quarter: 2013Q2

REPORT INFORMATION
  Report Type: Spontaneous
  Country: US (occurrence: US)
  Receive Date: 20130506
  Receipt Date: 20130506
  Transmission Date: 20140414
  Serious: No
  Sender: FDA-Public Use
  Company Number: US-ASTRAZENECA-2012SE83673

PATIENT
  Sex: Male

DRUGS (2)
  1. PRILOSEC OTC [Suspect]
     Dosage: 1 TABLET, OFF AND ON
     Route: 048
     Dates: start: 201209, end: 20120928
  2. RISEDRONATE SODIUM [Concomitant]

REACTIONS (4)
  - Cheilitis [Recovered/Resolved]
  - Chapped lips [Recovered/Resolved]
  - Paraesthesia oral [Recovering/Resolving]
  - Lip swelling [Recovered/Resolved]
